FAERS Safety Report 9033583 (Version 1)
Quarter: 2013Q1

REPORT INFORMATION
  Report Type: Spontaneous
  Country: IT (occurrence: IT)
  Receive Date: 20130128
  Receipt Date: 20130128
  Transmission Date: 20140127
  Serious: Yes (Hospitalization)
  Sender: FDA-Public Use
  Company Number: IT-BRISTOL-MYERS SQUIBB COMPANY-17318254

PATIENT
  Age: 82 Year
  Sex: Female

DRUGS (1)
  1. COUMADIN TABS 5 MG [Suspect]
     Indication: CARDIAC FIBRILLATION
     Route: 048
     Dates: start: 20120601, end: 20121025

REACTIONS (1)
  - Cerebrovascular accident [Recovering/Resolving]
